FAERS Safety Report 8910155 (Version 1)
Quarter: 2012Q4

REPORT INFORMATION
  Report Type: 
  Country: US (occurrence: US)
  Receive Date: 20121115
  Receipt Date: 20121115
  Transmission Date: 20130627
  Serious: No
  Sender: FDA-Public Use
  Company Number: US-BAYER-2012-119469

PATIENT
  Age: 74 Year
  Sex: Female
  Weight: 88 kg

DRUGS (4)
  1. ALEVE CAPLET/TABLET,MIDOL EXTENDED RELIEF CAPLET [Suspect]
     Route: 048
  2. TRIAMTERENE [Concomitant]
  3. HYDROCHLOROTHIAZIDE [Concomitant]
  4. ORAL POTASSIUM SUPPLEMENT [Concomitant]

REACTIONS (1)
  - Incorrect dose administered [None]
